FAERS Safety Report 21713903 (Version 1)
Quarter: 2022Q4

REPORT INFORMATION
  Report Type: Report from Study
  Country: US (occurrence: US)
  Receive Date: 20221212
  Receipt Date: 20221212
  Transmission Date: 20230113
  Serious: Yes (Other)
  Sender: FDA-Public Use
  Company Number: US-MYLANLABS-2022M1137330

PATIENT
  Sex: Male

DRUGS (1)
  1. FLUOROURACIL [Suspect]
     Active Substance: FLUOROURACIL
     Indication: Ocular surface squamous neoplasia
     Dosage: 1 PERCENT (ONE WEEK; DROPS)
     Route: 065

REACTIONS (2)
  - Ocular surface disease [Recovered/Resolved]
  - Off label use [Unknown]
